FAERS Safety Report 20102659 (Version 2)
Quarter: 2021Q4

REPORT INFORMATION
  Report Type: Spontaneous
  Country: CZ (occurrence: CZ)
  Receive Date: 20211123
  Receipt Date: 20211224
  Transmission Date: 20220304
  Serious: Yes (Other)
  Sender: FDA-Public Use
  Company Number: CZ-002147023-NVSC2021CZ253451

PATIENT
  Sex: Female
  Weight: 56 kg

DRUGS (1)
  1. TOPAMAX [Suspect]
     Active Substance: TOPIRAMATE
     Indication: Migraine
     Dosage: 75 MG, QD, 2 YEARS
     Route: 048

REACTIONS (9)
  - Altered state of consciousness [Unknown]
  - Cognitive disorder [Unknown]
  - Photophobia [Unknown]
  - Phonophobia [Unknown]
  - Pain [Unknown]
  - Aura [Unknown]
  - General physical health deterioration [Unknown]
  - Vomiting [Unknown]
  - Drug ineffective [Unknown]
